FAERS Safety Report 5144928-6 (Version None)
Quarter: 2006Q4

REPORT INFORMATION
  Report Type: 
  Country: None (occurrence: None)
  Receive Date: 20061107
  Receipt Date: 20061026
  Transmission Date: 20070319
  Serious: Yes (Hospitalization)
  Sender: FDA-Public Use
  Company Number: PHRM2006FR02934

PATIENT
  Age: 86 Year
  Sex: Male

DRUGS (12)
  1. ZOMETA [Suspect]
     Route: 042
     Dates: start: 20060802, end: 20060802
  2. CIFLOX [Suspect]
     Indication: URINARY TRACT INFECTION
     Route: 048
     Dates: start: 20060731, end: 20060804
  3. PREVISCAN [Suspect]
     Indication: VISUAL DISTURBANCE
     Route: 048
     Dates: start: 20060802, end: 20060807
  4. MOTILIUM ^JANSSEN^ [Suspect]
     Indication: NAUSEA
     Route: 048
     Dates: start: 20060731, end: 20060807
  5. AUGMENTIN [Suspect]
     Indication: URINARY TRACT INFECTION
     Route: 048
     Dates: start: 20060731, end: 20060804
  6. REMINYL                                 /UNK/ [Concomitant]
     Indication: PRESENILE DEMENTIA
     Route: 048
     Dates: start: 20060731, end: 20060807
  7. RENITEC                                 /NET/ [Concomitant]
     Indication: ESSENTIAL HYPERTENSION
  8. TENORMIN [Concomitant]
     Indication: ESSENTIAL HYPERTENSION
  9. ESOMEPRAZOLE MAGNESIUM [Concomitant]
  10. OSTRAM [Concomitant]
  11. CONTRAMAL [Concomitant]
  12. EQUANIL [Concomitant]
     Indication: AGGRESSION

REACTIONS (6)
  - EOSINOPHILIA [None]
  - ERYTHEMA [None]
  - PYREXIA [None]
  - RASH [None]
  - RASH ERYTHEMATOUS [None]
  - VISUAL DISTURBANCE [None]
